FAERS Safety Report 25346259 (Version 1)
Quarter: 2025Q2

REPORT INFORMATION
  Report Type: Spontaneous
  Country: CN (occurrence: CN)
  Receive Date: 20250522
  Receipt Date: 20250522
  Transmission Date: 20250716
  Serious: Yes (Hospitalization, Other)
  Sender: BAXTER
  Company Number: None

PATIENT
  Age: 12 Year
  Sex: Male
  Weight: 46.8 kg

DRUGS (5)
  1. CYCLOPHOSPHAMIDE [Suspect]
     Active Substance: CYCLOPHOSPHAMIDE
     Indication: Acute lymphocytic leukaemia
     Dosage: 1.47 G, QD
     Route: 041
     Dates: start: 20250205, end: 20250205
  2. SODIUM CHLORIDE [Suspect]
     Active Substance: SODIUM CHLORIDE
     Dosage: 250 ML, BID (Q12H) (0.9% INJECTION WITH CYTARBINE)
     Route: 042
     Dates: start: 20250205, end: 20250208
  3. SODIUM CHLORIDE [Suspect]
     Active Substance: SODIUM CHLORIDE
     Dosage: 250 ML, QD (0.9% INJECTION WITH CYCLOPHOSPHAMIDE)
     Route: 042
     Dates: start: 20250205, end: 20250205
  4. MERCAPTOPURINE [Suspect]
     Active Substance: MERCAPTOPURINE
     Indication: Acute lymphocytic leukaemia
     Dosage: 73 MG, QD (QN- EVERY NIGHT)
     Route: 048
     Dates: start: 20250205, end: 20250209
  5. CYTARABINE [Suspect]
     Active Substance: CYTARABINE
     Indication: Acute lymphocytic leukaemia
     Dosage: 1.47 G, BID
     Route: 041
     Dates: start: 20250205, end: 20250208

REACTIONS (1)
  - Myelosuppression [Recovering/Resolving]

NARRATIVE: CASE EVENT DATE: 20250214
